FAERS Safety Report 10556405 (Version 2)
Quarter: 2015Q1

REPORT INFORMATION
  Report Type: Spontaneous
  Country: US (occurrence: US)
  Receive Date: 20141031
  Receipt Date: 20150226
  Transmission Date: 20150720
  Serious: No
  Sender: FDA-Public Use
  Company Number: US-009507513-1410USA013471

PATIENT
  Age: 58 Year
  Sex: Female

DRUGS (2)
  1. NASONEX [Suspect]
     Active Substance: MOMETASONE FUROATE
     Indication: VASOMOTOR RHINITIS
     Dosage: 1 IN EACH NOSTRIL IN AM, 1 IN EACH NOSTRIL PM
     Route: 045
  2. NASONEX [Suspect]
     Active Substance: MOMETASONE FUROATE
     Dosage: UNK
     Route: 045

REACTIONS (7)
  - Discomfort [Unknown]
  - Product quality issue [Unknown]
  - Drug ineffective for unapproved indication [Recovering/Resolving]
  - Product contamination physical [Unknown]
  - Head discomfort [Unknown]
  - Sneezing [Unknown]
  - Drug dose omission [Unknown]

NARRATIVE: CASE EVENT DATE: 20141020
